FAERS Safety Report 7824837-1 (Version None)
Quarter: 2011Q4

REPORT INFORMATION
  Report Type: 
  Country: None (occurrence: None)
  Receive Date: 20111019
  Receipt Date: 20110209
  Transmission Date: 20120403
  Serious: No
  Sender: FDA-Public Use
  Company Number: US-BRISTOL-MYERS SQUIBB COMPANY-15541121

PATIENT
  Sex: Female

DRUGS (2)
  1. AVALIDE [Suspect]
     Dosage: FOR 3 YEARS
  2. LEVOXYL [Concomitant]
     Indication: HYPOTHYROIDISM

REACTIONS (1)
  - DRY MOUTH [None]
